FAERS Safety Report 11788226 (Version 1)
Quarter: 2015Q4

REPORT INFORMATION
  Report Type: Spontaneous
  Country: DE (occurrence: DE)
  Receive Date: 20151201
  Receipt Date: 20151201
  Transmission Date: 20160305
  Serious: Yes (Death)
  Sender: FDA-Public Use
  Company Number: DE-ROCHE-1670225

PATIENT
  Age: 50 Year
  Sex: Male

DRUGS (4)
  1. EVEROLIMUS [Concomitant]
     Active Substance: EVEROLIMUS
     Dosage: TARGET RANGE: 5 - 8 NG/ML
     Route: 065
  2. TACROLIMUS. [Suspect]
     Active Substance: TACROLIMUS
     Indication: IMMUNOSUPPRESSION
     Route: 065
     Dates: start: 201001, end: 201010
  3. MYCOPHENOLATE MOFETIL. [Suspect]
     Active Substance: MYCOPHENOLATE MOFETIL
     Indication: IMMUNOSUPPRESSION
     Route: 065
     Dates: start: 201001, end: 201010
  4. SORAFENIB [Concomitant]
     Active Substance: SORAFENIB
     Dosage: 400- 800 MG/DAY
     Route: 065

REACTIONS (2)
  - Hepatocellular carcinoma [Fatal]
  - Metastases to lung [Fatal]

NARRATIVE: CASE EVENT DATE: 201010
